FAERS Safety Report 4313718-6 (Version None)
Quarter: 2004Q1

REPORT INFORMATION
  Report Type: 
  Country: None (occurrence: None)
  Receive Date: 20040305
  Receipt Date: 20040226
  Transmission Date: 20041129
  Serious: Yes (Other)
  Sender: FDA-Public Use
  Company Number: 200410993BCC

PATIENT
  Age: 19 Year
  Sex: Female
  Weight: 48.0813 kg

DRUGS (5)
  1. ALEVE (CAPLET) [Suspect]
     Indication: MIGRAINE
     Dosage: 2200-3300 MG, QD, ORAL
     Route: 048
  2. MULTI-VITAMINS [Concomitant]
  3. IRON [Concomitant]
  4. TYLENOL (CAPLET) [Concomitant]
  5. BIRTH CONTROL PILLS [Concomitant]

REACTIONS (3)
  - BONE MARROW DISORDER [None]
  - RED BLOOD CELL COUNT DECREASED [None]
  - WHITE BLOOD CELL COUNT DECREASED [None]
